FAERS Safety Report 5239532-5 (Version None)
Quarter: 2007Q1

REPORT INFORMATION
  Report Type: 
  Country: None (occurrence: None)
  Receive Date: 20070212
  Receipt Date: 20070129
  Transmission Date: 20070707
  Serious: Yes (Death, Other)
  Sender: FDA-Public Use
  Company Number: 15592

PATIENT
  Age: 64 Year
  Sex: Male

DRUGS (5)
  1. MITOXANTRONE [Suspect]
     Indication: METASTASES TO BONE
     Dosage: 12 MG/M2 Q21DAYS IV
     Route: 042
  2. MITOXANTRONE [Suspect]
     Indication: PROSTATE CANCER METASTATIC
     Dosage: 12 MG/M2 Q21DAYS IV
     Route: 042
  3. DOCETAXEL [Concomitant]
  4. IROFULVEN [Concomitant]
  5. CAPECITABINE [Concomitant]

REACTIONS (3)
  - ACUTE MYELOID LEUKAEMIA [None]
  - MALIGNANT NEOPLASM PROGRESSION [None]
  - PROSTATE CANCER [None]
